FAERS Safety Report 5209157-6 (Version None)
Quarter: 2007Q1

REPORT INFORMATION
  Report Type: 
  Country: None (occurrence: None)
  Receive Date: 20070116
  Receipt Date: 20070109
  Transmission Date: 20070707
  Serious: Yes (Hospitalization)
  Sender: FDA-Public Use
  Company Number: US-BRISTOL-MYERS SQUIBB COMPANY-13641253

PATIENT
  Age: 69 Year
  Sex: Female

DRUGS (10)
  1. TEQUIN [Suspect]
     Indication: DIVERTICULITIS
     Route: 048
     Dates: start: 20040213, end: 20040213
  2. TENORMIN [Concomitant]
  3. ATACAND [Concomitant]
  4. NEURONTIN [Concomitant]
     Dosage: 400 MG AT 4PM AND 8PM
  5. SYNTHROID [Concomitant]
  6. WELCHOL [Concomitant]
  7. TOPAMAX [Concomitant]
     Indication: NEUROPATHY PERIPHERAL
  8. ASPIRIN [Concomitant]
  9. AMARYL [Concomitant]
  10. ACIPHEX [Concomitant]

REACTIONS (2)
  - HYPOGLYCAEMIA [None]
  - RENAL IMPAIRMENT [None]
